FAERS Safety Report 9189270 (Version 1)
Quarter: 2013Q1

REPORT INFORMATION
  Report Type: Spontaneous
  Country: US (occurrence: None)
  Receive Date: 20130321
  Receipt Date: 20130321
  Transmission Date: 20140127
  Serious: Yes (Hospitalization)
  Sender: FDA-Public Use
  Company Number: None

PATIENT
  Sex: Male
  Weight: 49.69 kg

DRUGS (8)
  1. DAPSONE [Suspect]
     Route: 048
     Dates: start: 20120920, end: 20121003
  2. TYLENOL-CODEINE [Concomitant]
  3. MIRALAX [Concomitant]
  4. DOCUSATE [Concomitant]
  5. ONDANSETRON [Concomitant]
  6. MERCAPTOPURINE [Concomitant]
  7. OMEPRAZOLE [Concomitant]
  8. METHOTREXATE [Concomitant]

REACTIONS (1)
  - Methaemoglobinaemia [None]
